FAERS Safety Report 12563677 (Version 1)
Quarter: 2016Q3

REPORT INFORMATION
  Report Type: Spontaneous
  Country: US (occurrence: US)
  Receive Date: 20160715
  Receipt Date: 20160715
  Transmission Date: 20161109
  Serious: Yes (Death)
  Sender: FDA-Public Use
  Company Number: US-LEITERS-1055128

PATIENT
  Age: 70 Year
  Sex: Male

DRUGS (1)
  1. BEVACIZUMAB 25 MG/ML (2.5 MG/0.1 ML) REPACK INJECTION, 0.1 ML IN 1 ML [Suspect]
     Active Substance: BEVACIZUMAB
     Indication: DIABETIC RETINAL OEDEMA
     Route: 050
     Dates: start: 20160629, end: 20160629

REACTIONS (1)
  - Death [Fatal]

NARRATIVE: CASE EVENT DATE: 20160630
